FAERS Safety Report 9991926 (Version 4)
Quarter: 2014Q2

REPORT INFORMATION
  Report Type: Report from Study
  Country: FR (occurrence: FR)
  Receive Date: 20140310
  Receipt Date: 20140613
  Transmission Date: 20141212
  Serious: Yes (Hospitalization)
  Sender: FDA-Public Use
  Company Number: FR-UCBSA-113589

PATIENT
  Age: 77 Year
  Sex: Female
  Weight: 91 kg

DRUGS (9)
  1. CERTOLIZUMAB PEGOL RA [Suspect]
     Indication: RHEUMATOID ARTHRITIS
     Dosage: MAINTAINENCE DOSE
     Route: 058
     Dates: start: 20121119, end: 20131119
  2. CERTOLIZUMAB PEGOL RA [Suspect]
     Dosage: MAINTAINENCE DOSE
     Route: 058
  3. LEVOTHYROX [Concomitant]
     Indication: HYPOTHYROIDISM
     Route: 048
  4. HYDROCORTISONE [Concomitant]
     Indication: ADRENAL INSUFFICIENCY
     Route: 048
  5. HYDROCORTISONE [Concomitant]
     Indication: LUNG INFECTION
     Dosage: 30 MG, ONCE DAILY (QD)
     Dates: start: 20131211, end: 20131222
  6. HYDROCORTISONE [Concomitant]
     Dosage: 20 MG, ONCE DAILY (QD)
     Dates: start: 20131223
  7. SIMVASTATINE [Concomitant]
     Indication: HYPERCHOLESTEROLAEMIA
     Route: 048
  8. STAGID [Concomitant]
     Indication: DIABETES MELLITUS
     Route: 048
  9. DIFFUK [Concomitant]
     Indication: HYPOKALAEMIA
     Route: 048

REACTIONS (1)
  - Lung infection [Recovered/Resolved]
